FAERS Safety Report 5839158-6 (Version None)
Quarter: 2008Q3

REPORT INFORMATION
  Report Type: 
  Country: None (occurrence: None)
  Receive Date: 20080808
  Receipt Date: 20080731
  Transmission Date: 20090109
  Serious: Yes (Hospitalization)
  Sender: FDA-Public Use
  Company Number: US-ABBOTT-08P-163-0467693-00

PATIENT
  Sex: Female

DRUGS (2)
  1. ZEMPLAR CAPSULES 2MCG [Suspect]
     Indication: HYPERPARATHYROIDISM SECONDARY
     Dates: start: 20071001
  2. CEPHALEXIN [Suspect]
     Indication: CHOLELITHIASIS
     Dates: start: 20080701

REACTIONS (6)
  - CHOLELITHIASIS [None]
  - DRUG INTOLERANCE [None]
  - NAUSEA [None]
  - ORAL MUCOSAL DISCOLOURATION [None]
  - PHARYNGEAL DISORDER [None]
  - VOMITING [None]
